FAERS Safety Report 8258777-3 (Version None)
Quarter: 2012Q2

REPORT INFORMATION
  Report Type: 
  Country: None (occurrence: None)
  Receive Date: 20120404
  Receipt Date: 20120323
  Transmission Date: 20120825
  Serious: Yes (Other)
  Sender: FDA-Public Use
  Company Number: JP-UCBSA-054199

PATIENT
  Age: 22 Year
  Sex: Male

DRUGS (3)
  1. HIRUDOID [Concomitant]
     Route: 061
     Dates: start: 20120127
  2. ANTEBATE [Concomitant]
     Indication: DERMATITIS ATOPIC
     Route: 061
     Dates: start: 20120127
  3. XYZAL [Suspect]
     Indication: DERMATITIS ATOPIC
     Route: 048
     Dates: start: 20120127, end: 20120224

REACTIONS (1)
  - HEPATIC FUNCTION ABNORMAL [None]
